FAERS Safety Report 14658483 (Version 5)
Quarter: 2019Q1

REPORT INFORMATION
  Report Type: Spontaneous
  Country: DE (occurrence: DE)
  Receive Date: 20180320
  Receipt Date: 20190118
  Transmission Date: 20190417
  Serious: Yes (Life-Threatening, Hospitalization, Congenital Anomaly)
  Sender: FDA-Public Use
  Company Number: DE-ROCHE-2090148

PATIENT
  Age: 1 Day
  Sex: Male
  Weight: 2.07 kg

DRUGS (5)
  1. CYCLOPHOSPHAMIDE. [Suspect]
     Active Substance: CYCLOPHOSPHAMIDE
     Indication: PRODUCT USED FOR UNKNOWN INDICATION
     Route: 064
  2. VINCRISTINE [Suspect]
     Active Substance: VINCRISTINE
     Indication: PRODUCT USED FOR UNKNOWN INDICATION
     Route: 064
  3. RITUXIMAB. [Suspect]
     Active Substance: RITUXIMAB
     Indication: PRODUCT USED FOR UNKNOWN INDICATION
     Route: 064
  4. DOXORUBICIN [Suspect]
     Active Substance: DOXORUBICIN
     Indication: PRODUCT USED FOR UNKNOWN INDICATION
     Route: 064
  5. PREDNISOLONE. [Suspect]
     Active Substance: PREDNISOLONE
     Indication: PRODUCT USED FOR UNKNOWN INDICATION
     Dosage: 5 CONSECUTIVE DAYS PER CYCLE
     Route: 064

REACTIONS (20)
  - Cardiovascular insufficiency [Recovering/Resolving]
  - Anuria [Recovering/Resolving]
  - Acute kidney injury [Recovering/Resolving]
  - Acidosis [Recovering/Resolving]
  - Troponin T increased [Recovering/Resolving]
  - Ventricular septal defect [Recovered/Resolved]
  - Left ventricular dilatation [Recovered/Resolved]
  - Foetal exposure during pregnancy [Unknown]
  - Cardiotoxicity [Recovered/Resolved]
  - Cardiac output decreased [Recovered/Resolved]
  - Respiratory failure [Recovering/Resolving]
  - Blood creatine phosphokinase MB increased [Recovering/Resolving]
  - N-terminal prohormone brain natriuretic peptide increased [Recovering/Resolving]
  - Cardiomyopathy [Recovered/Resolved]
  - Congenital cardiovascular anomaly [Recovered/Resolved]
  - Mean arterial pressure decreased [Recovering/Resolving]
  - Ejection fraction decreased [Recovering/Resolving]
  - Heart disease congenital [Recovered/Resolved]
  - Blood creatine phosphokinase increased [Recovering/Resolving]
  - Renal impairment [Recovering/Resolving]
